FAERS Safety Report 7707004-1 (Version None)
Quarter: 2011Q3

REPORT INFORMATION
  Report Type: 
  Country: None (occurrence: None)
  Receive Date: 20110824
  Receipt Date: 20110817
  Transmission Date: 20111222
  Serious: Yes (Other)
  Sender: FDA-Public Use
  Company Number: AR-GENZYME-CLOF-1001750

PATIENT
  Age: 5 Year
  Sex: Female

DRUGS (15)
  1. CLOLAR [Suspect]
     Indication: ACUTE MONOCYTIC LEUKAEMIA
     Dosage: UNK
     Route: 065
     Dates: start: 20110701
  2. CYTARABINE [Suspect]
     Dosage: 1ST CYCLE FLAG
     Route: 065
  3. NEUPOGEN [Suspect]
     Dosage: 1ST CYCLE FLAG
     Route: 065
  4. IDARUBICIN HCL [Suspect]
     Indication: ACUTE MONOCYTIC LEUKAEMIA
     Dosage: 1 CYCLE FLAG-IDA
     Route: 065
  5. NEUPOGEN [Suspect]
     Indication: ACUTE MONOCYTIC LEUKAEMIA
     Dosage: 1 CYCLE FLAG-IDA
     Route: 065
  6. CLADRIBINE [Suspect]
     Indication: ACUTE MONOCYTIC LEUKAEMIA
     Dosage: UNK
     Route: 065
  7. FLUDARA [Suspect]
     Indication: ACUTE MONOCYTIC LEUKAEMIA
     Dosage: 1 CYCLE FLAG-IDA
     Route: 065
  8. CYTARABINE [Suspect]
     Dosage: UNK
     Route: 065
  9. CYTARABINE [Suspect]
     Indication: ACUTE MONOCYTIC LEUKAEMIA
     Dosage: 1 CYCLE FLAG-IDA
     Route: 065
  10. FLUDARA [Suspect]
     Dosage: 2ND CYCLE FLAG
     Route: 065
  11. NEUPOGEN [Suspect]
     Dosage: 2ND CYCLE FLAG
     Route: 065
  12. FLUDARA [Suspect]
     Dosage: 1ST CYCLE FLAG
     Route: 065
  13. CYTARABINE [Suspect]
     Dosage: 2ND CYCLE FLAG
     Route: 065
  14. CYCLOPHOSPHAMIDE [Suspect]
     Indication: ACUTE MONOCYTIC LEUKAEMIA
     Dosage: UNK
     Route: 065
     Dates: start: 20110701
  15. ETOPOSIDE [Suspect]
     Indication: ACUTE MONOCYTIC LEUKAEMIA
     Dosage: UNK
     Route: 065
     Dates: start: 20110701

REACTIONS (1)
  - ACUTE MONOCYTIC LEUKAEMIA [None]
